FAERS Safety Report 7946172-3 (Version None)
Quarter: 2011Q4

REPORT INFORMATION
  Report Type: 
  Country: None (occurrence: None)
  Receive Date: 20111129
  Receipt Date: 20111123
  Transmission Date: 20120403
  Serious: Yes (Hospitalization)
  Sender: FDA-Public Use
  Company Number: FR-GLAXOSMITHKLINE-B0765208A

PATIENT
  Sex: Male
  Weight: 72 kg

DRUGS (11)
  1. PANTOPRAZOLE [Concomitant]
     Indication: GASTROOESOPHAGEAL REFLUX DISEASE
  2. PAZOPANIB [Suspect]
     Indication: GASTROINTESTINAL CANCER METASTATIC
     Dosage: 800MG PER DAY
     Route: 048
     Dates: start: 20110914
  3. PREDNISOLONE [Concomitant]
     Indication: INFLAMMATION
     Route: 048
  4. DEPAKENE [Concomitant]
     Indication: EPILEPSY
     Route: 048
  5. DEBRIDAT [Concomitant]
     Indication: GASTROINTESTINAL DISORDER
  6. MODANE [Concomitant]
     Indication: CONSTIPATION
  7. AMLODIPINE BESYLATE [Concomitant]
     Indication: HYPERTENSION
  8. MOVIPREP [Concomitant]
     Indication: CONSTIPATION
  9. MORPHINE SULFATE [Concomitant]
     Indication: PAIN
     Dosage: 30MG PER DAY
     Route: 048
     Dates: start: 20111010
  10. EDUCTYL [Concomitant]
     Indication: CONSTIPATION
  11. NORMACOL [Concomitant]
     Indication: CONSTIPATION

REACTIONS (1)
  - PULMONARY EMBOLISM [None]
